FAERS Safety Report 13162281 (Version 1)
Quarter: 2017Q1

REPORT INFORMATION
  Report Type: Spontaneous
  Country: US (occurrence: US)
  Receive Date: 20170124
  Receipt Date: 20170124
  Transmission Date: 20170428
  Serious: Yes (Life-Threatening, Hospitalization)
  Sender: FDA-Public Use
  Company Number: None

PATIENT
  Age: 33 Year
  Sex: Female
  Weight: 69.3 kg

DRUGS (5)
  1. NORCO [Concomitant]
     Active Substance: ACETAMINOPHEN\HYDROCODONE BITARTRATE
  2. ELIQUIL [Concomitant]
  3. ZOFRAN [Concomitant]
     Active Substance: ONDANSETRON HYDROCHLORIDE
  4. QUASENSE [Suspect]
     Active Substance: ETHINYL ESTRADIOL\LEVONORGESTREL
     Indication: DYSMENORRHOEA
     Dosage: ?          QUANTITY:91 TABLET(S);?
     Route: 048
     Dates: start: 20160529, end: 20170122
  5. QUASENSE [Suspect]
     Active Substance: ETHINYL ESTRADIOL\LEVONORGESTREL
     Indication: MENORRHAGIA
     Dosage: ?          QUANTITY:91 TABLET(S);?
     Route: 048
     Dates: start: 20160529, end: 20170122

REACTIONS (2)
  - Pulmonary embolism [None]
  - Fall [None]

NARRATIVE: CASE EVENT DATE: 20170122
